FAERS Safety Report 20593655 (Version 3)
Quarter: 2022Q4

REPORT INFORMATION
  Report Type: Spontaneous
  Country: PL (occurrence: PL)
  Receive Date: 20220315
  Receipt Date: 20221129
  Transmission Date: 20230113
  Serious: Yes (Other)
  Sender: FDA-Public Use
  Company Number: PL-Accord-256869

PATIENT
  Age: 40 Year
  Sex: Female

DRUGS (12)
  1. ATORVASTATIN [Interacting]
     Active Substance: ATORVASTATIN
     Indication: Dyslipidaemia
     Dosage: 20 MG ONCE A DAY
  2. QUETIAPINE [Interacting]
     Active Substance: QUETIAPINE
     Indication: Depression
     Dosage: INCREASED THE DOSE OF QUETIAPINE BY 50 MG; DOSE WAS INCREASED TO 200 MG PER DAY, BEFORE BEDTIME
  3. FLUCONAZOLE [Interacting]
     Active Substance: FLUCONAZOLE
     Indication: Vaginal discharge
     Dosage: 200 MG/DAY WITH A PREPARATION CONTAINING CRANBERRY EXTRACT
     Route: 048
  4. CRANBERRY [Interacting]
     Active Substance: CRANBERRY
     Indication: Dysuria
     Dosage: PREPARATION CONTAINING THE CRANBERRY EXTRACT
  5. PAROXETINE [Interacting]
     Active Substance: PAROXETINE
     Indication: Depression
     Dosage: 20 MG PER DAY THEN DOSE WAS INCREASED TO 40 MG PER DAY,
  6. BIOTIN [Interacting]
     Active Substance: BIOTIN
     Indication: Alopecia
     Dosage: 20 MG PER DAY
  7. ETHAMSYLATE [Concomitant]
     Active Substance: ETHAMSYLATE
     Indication: Epistaxis
  8. FLUCONAZOLE [Interacting]
     Active Substance: FLUCONAZOLE
     Indication: Dysuria
     Dosage: 200 MG/DAY WITH A PREPARATION CONTAINING CRANBERRY EXTRACT
  9. QUETIAPINE [Interacting]
     Active Substance: QUETIAPINE
     Indication: Affective disorder
  10. FLUCONAZOLE [Interacting]
     Active Substance: FLUCONAZOLE
     Indication: Micturition disorder
  11. CRANBERRY [Interacting]
     Active Substance: CRANBERRY
     Indication: Vaginal discharge
  12. CRANBERRY [Interacting]
     Active Substance: CRANBERRY
     Indication: Blood uric acid increased

REACTIONS (9)
  - Drug interaction [Unknown]
  - Epistaxis [Recovered/Resolved]
  - Thrombocytopenia [Recovered/Resolved]
  - Leukopenia [Recovered/Resolved]
  - Hypothyroidism [Recovered/Resolved]
  - Asthenia [Recovered/Resolved]
  - Treatment failure [Unknown]
  - Drug level increased [Recovering/Resolving]
  - Food interaction [Unknown]
